FAERS Safety Report 5690967-6 (Version None)
Quarter: 2008Q2

REPORT INFORMATION
  Report Type: 
  Country: None (occurrence: None)
  Receive Date: 20080401
  Receipt Date: 20080320
  Transmission Date: 20081010
  Serious: Yes (Hospitalization, Other)
  Sender: FDA-Public Use
  Company Number: US-PFIZER INC-2008027160

PATIENT
  Sex: Female
  Weight: 56.818 kg

DRUGS (2)
  1. CHANTIX [Suspect]
     Indication: SMOKING CESSATION THERAPY
     Dates: start: 20071101, end: 20071201
  2. VALSARTAN [Concomitant]
     Indication: HYPERTENSION

REACTIONS (8)
  - ABDOMINAL PAIN UPPER [None]
  - ASTHENIA [None]
  - FATIGUE [None]
  - GASTRITIS [None]
  - HEPATIC ENZYME INCREASED [None]
  - HEPATITIS [None]
  - MALAISE [None]
  - NAUSEA [None]
